FAERS Safety Report 4735083-2 (Version None)
Quarter: 2005Q3

REPORT INFORMATION
  Report Type: 
  Country: None (occurrence: None)
  Receive Date: 20050804
  Receipt Date: 20050419
  Transmission Date: 20060218
  Serious: Yes (Other)
  Sender: FDA-Public Use
  Company Number: US-MERCK-0504USA03717

PATIENT
  Age: 52 Year
  Sex: Male

DRUGS (7)
  1. VIOXX [Suspect]
     Indication: BACK PAIN
     Route: 048
     Dates: start: 19990726, end: 20041011
  2. NORVASC [Concomitant]
     Route: 048
     Dates: start: 19950101
  3. ASPIRIN [Concomitant]
     Route: 048
     Dates: start: 19950101
  4. LIPITOR [Concomitant]
     Indication: BLOOD CHOLESTEROL INCREASED
     Route: 048
     Dates: start: 19950101
  5. WELLBUTRIN SR [Concomitant]
     Indication: DEPRESSION
     Route: 048
  6. WELLBUTRIN SR [Concomitant]
     Indication: EX-SMOKER
     Route: 048
  7. VIOXX [Suspect]
     Indication: MUSCULOSKELETAL DISCOMFORT
     Route: 048
     Dates: start: 19990726, end: 20041011

REACTIONS (7)
  - ARTHROPATHY [None]
  - CARDIAC DISORDER [None]
  - DIABETES MELLITUS [None]
  - HERNIA [None]
  - MUSCULOSKELETAL DISCOMFORT [None]
  - MYOCARDIAL INFARCTION [None]
  - TRANSIENT ISCHAEMIC ATTACK [None]
